FAERS Safety Report 6456909-0 (Version None)
Quarter: 2009Q4

REPORT INFORMATION
  Report Type: 
  Country: None (occurrence: None)
  Receive Date: 20091125
  Receipt Date: 20091118
  Transmission Date: 20100525
  Serious: Yes (Hospitalization)
  Sender: FDA-Public Use
  Company Number: US-GENENTECH-291048

PATIENT
  Sex: Male
  Weight: 80.9 kg

DRUGS (5)
  1. APOMAB (PRO95780) [Suspect]
     Indication: COLORECTAL CANCER
     Dosage: 575 UNK, Q2W
     Route: 042
     Dates: start: 20090714
  2. AVASTIN [Suspect]
     Indication: COLORECTAL CANCER
     Dosage: 411 UNK, UNK
     Route: 042
     Dates: start: 20090714
  3. OXALIPLATIN [Suspect]
     Indication: COLORECTAL CANCER
     Dosage: 170 UNK, UNK
     Route: 042
     Dates: start: 20090714
  4. LEUCOVORIN CALCIUM [Suspect]
     Indication: COLORECTAL CANCER
     Dosage: 800 UNK, UNK
     Route: 042
     Dates: start: 20090714
  5. FLUOROURACIL [Suspect]
     Indication: COLORECTAL CANCER
     Dosage: 4800 UNK, UNK
     Route: 042
     Dates: start: 20090714

REACTIONS (1)
  - CROHN'S DISEASE [None]
